FAERS Safety Report 19137315 (Version 1)
Quarter: 2021Q2

REPORT INFORMATION
  Report Type: Spontaneous
  Country: DE (occurrence: DE)
  Receive Date: 20210415
  Receipt Date: 20210415
  Transmission Date: 20210717
  Serious: Yes (Hospitalization)
  Sender: FDA-Public Use
  Company Number: DE-TEVA-2021-DE-1899917

PATIENT
  Age: 80 Year
  Sex: Male

DRUGS (13)
  1. TORASEMID [Concomitant]
     Active Substance: TORSEMIDE
     Dosage: 10 MILLIGRAM DAILY; 10 MG, 0.5?0.5?0?0
  2. TAMSULOSIN [Concomitant]
     Active Substance: TAMSULOSIN
     Dosage: .4 MILLIGRAM DAILY; 0?0?1?0,
  3. PANTOPRAZOL [Concomitant]
     Active Substance: PANTOPRAZOLE SODIUM
     Dosage: 20 MILLIGRAM DAILY; 1?0?0?0
  4. PREGABALIN. [Concomitant]
     Active Substance: PREGABALIN
     Dosage: 400 MILLIGRAM DAILY; 1?0?1?0
  5. LACTULOSE. [Concomitant]
     Active Substance: LACTULOSE
     Dosage: IF NECESSARY, SYRUP
  6. HYDROMORPHON [Suspect]
     Active Substance: HYDROMORPHONE
     Dosage: 32 MILLIGRAM DAILY; 1?0?1?0
  7. CARVEDILOL. [Concomitant]
     Active Substance: CARVEDILOL
     Dosage: 12.5 MG, 0.5?0?1?0:UNIT DOSE:1.5DOSAGEFORM
  8. MAGNESIUM [Concomitant]
     Active Substance: MAGNESIUM
     Dosage: 400 MILLIGRAM DAILY; 1?0?0?0
  9. MACROGOL [Concomitant]
     Active Substance: POLYETHYLENE GLYCOLS
     Dosage: 1 DOSAGE FORMS DAILY; 1?0?0?0, SACHETS
  10. CANDESARTAN. [Concomitant]
     Active Substance: CANDESARTAN
     Dosage: 16 MILLIGRAM DAILY; 1?0?1?0
  11. EZETIMIB/SIMVASTATIN [Concomitant]
     Active Substance: EZETIMIBE\SIMVASTATIN
     Dosage: 1 DOSAGE FORMS DAILY; 10|20 MG, 1?0?0?0
  12. LEVOTHYROXIN?NATRIUM [Concomitant]
     Active Substance: LEVOTHYROXINE SODIUM
     Dosage: 75 MICROGRAM DAILY; 1?0?0?0
  13. ASS 100 [Suspect]
     Active Substance: ASPIRIN
     Dosage: 100 MILLIGRAM DAILY; 1?0?0?0

REACTIONS (6)
  - Vomiting [Unknown]
  - Anaemia [Unknown]
  - Haemoptysis [Unknown]
  - Dizziness [Unknown]
  - General physical health deterioration [Unknown]
  - Hyperhidrosis [Unknown]
